FAERS Safety Report 23461138 (Version 1)
Quarter: 2024Q1

REPORT INFORMATION
  Report Type: Spontaneous
  Country: JP (occurrence: JP)
  Receive Date: 20240131
  Receipt Date: 20240131
  Transmission Date: 20240409
  Serious: Yes (Hospitalization)
  Sender: FDA-Public Use
  Company Number: JP-BAYER-2024A005736

PATIENT
  Age: 8 Decade
  Sex: Female

DRUGS (1)
  1. BETAFERON [Suspect]
     Active Substance: INTERFERON BETA-1B
     Indication: Multiple sclerosis relapse prophylaxis

REACTIONS (1)
  - Urinary tract infection [None]
